FAERS Safety Report 22188609 (Version 2)
Quarter: 2023Q2

REPORT INFORMATION
  Report Type: Spontaneous
  Country: US (occurrence: None)
  Receive Date: 20230409
  Receipt Date: 20230509
  Transmission Date: 20230721
  Serious: No
  Sender: FDA-Public Use
  Company Number: 2023A061356

PATIENT
  Age: 27553 Day
  Sex: Male
  Weight: 69.4 kg

DRUGS (1)
  1. BYDUREON BCISE [Suspect]
     Active Substance: EXENATIDE
     Indication: Diabetes mellitus
     Route: 058

REACTIONS (5)
  - Injection site haemorrhage [Unknown]
  - Intentional device misuse [Unknown]
  - Device use issue [Unknown]
  - Injection site discharge [Unknown]
  - Device malfunction [Unknown]

NARRATIVE: CASE EVENT DATE: 20230311
